FAERS Safety Report 14349144 (Version 3)
Quarter: 2018Q2

REPORT INFORMATION
  Report Type: Spontaneous
  Country: IT (occurrence: IT)
  Receive Date: 20180104
  Receipt Date: 20180409
  Transmission Date: 20180711
  Serious: Yes (Hospitalization)
  Sender: FDA-Public Use
  Company Number: IT-CIPLA LTD.-2017IT30151

PATIENT

DRUGS (4)
  1. DEURSIL RR (URSODEOXYCHOLIC ACID) [Suspect]
     Active Substance: URSODIOL
     Indication: DRUG ABUSE
     Dosage: 5 DF, TOTAL
     Route: 048
     Dates: start: 20170819, end: 20170819
  2. ZIMOX                              /00249602/ [Suspect]
     Active Substance: AMOXICILLIN
     Indication: DRUG ABUSE
     Dosage: 2 G, IN TOTAL
     Route: 048
     Dates: start: 20170819, end: 20170819
  3. ZOLPIDEM TARTRATE. [Suspect]
     Active Substance: ZOLPIDEM TARTRATE
     Indication: DRUG ABUSE
     Dosage: 30 MG, UNK (TOTAL)
     Route: 048
     Dates: start: 20170819, end: 20170819
  4. TACHIPIRINA [Suspect]
     Active Substance: ACETAMINOPHEN
     Indication: DRUG ABUSE
     Dosage: 5 G, TOTAL
     Route: 048
     Dates: start: 20170819, end: 20170819

REACTIONS (5)
  - Sopor [Recovered/Resolved]
  - Heart rate increased [Recovered/Resolved]
  - Oxygen saturation decreased [Recovered/Resolved]
  - Aspartate aminotransferase increased [Recovered/Resolved]
  - Drug abuse [Recovered/Resolved]

NARRATIVE: CASE EVENT DATE: 20170819
